FAERS Safety Report 4440615-8 (Version None)
Quarter: 2004Q3

REPORT INFORMATION
  Report Type: 
  Country: None (occurrence: None)
  Receive Date: 20040901
  Receipt Date: 20040901
  Transmission Date: 20050211
  Serious: Yes (Hospitalization)
  Sender: FDA-Public Use
  Company Number: None

PATIENT
  Sex: Female

DRUGS (1)
  1. CIPRO [Suspect]
     Indication: URINARY TRACT INFECTION
     Dosage: PO [PRIOR TO ADMISSION]
     Route: 048
     Dates: start: 20040321

REACTIONS (2)
  - DIZZINESS [None]
  - THROAT TIGHTNESS [None]
